FAERS Safety Report 4939252-8 (Version None)
Quarter: 2006Q1

REPORT INFORMATION
  Report Type: 
  Country: None (occurrence: None)
  Receive Date: 20060309
  Receipt Date: 20060309
  Transmission Date: 20060701
  Serious: Yes (Hospitalization)
  Sender: FDA-Public Use
  Company Number: None

PATIENT
  Sex: Female
  Weight: 57.6 kg

DRUGS (4)
  1. TAXOTERE [Suspect]
     Indication: BREAST CANCER
     Dosage: 60MG/M2 IV Q 3 WKS
     Route: 042
     Dates: start: 20060220
  2. HERCEPTIN [Suspect]
     Indication: BREAST CANCER
     Dosage: 6 MG/KG IV Q 3 WKS
     Route: 042
     Dates: start: 20060220
  3. IRESSA [Concomitant]
  4. TYLENOL (CAPLET) [Concomitant]

REACTIONS (7)
  - CELLULITIS [None]
  - DEHYDRATION [None]
  - DIARRHOEA [None]
  - HERPES SIMPLEX [None]
  - MUCOSAL INFLAMMATION [None]
  - PHARYNGITIS [None]
  - STOMATITIS [None]
